FAERS Safety Report 9413157 (Version 1)
Quarter: 2013Q2

REPORT INFORMATION
  Report Type: Spontaneous
  Country: None (occurrence: None)
  Receive Date: 20130531
  Receipt Date: 20130531
  Transmission Date: 20140414
  Serious: No
  Sender: FDA-Public Use
  Company Number: 2135225-2013-00014

PATIENT
  Sex: 0

DRUGS (1)
  1. AETHOXYSKLEROL [Suspect]
     Dates: start: 201302

REACTIONS (1)
  - Epilepsy [None]
